FAERS Safety Report 6323158-6 (Version None)
Quarter: 2009Q3

REPORT INFORMATION
  Report Type: 
  Country: None (occurrence: None)
  Receive Date: 20090824
  Receipt Date: 20090812
  Transmission Date: 20100115
  Serious: Yes (Other)
  Sender: FDA-Public Use
  Company Number: US-PFIZER INC-2009239361

PATIENT
  Sex: Female
  Weight: 68.027 kg

DRUGS (3)
  1. CHANTIX [Suspect]
     Indication: SMOKING CESSATION THERAPY
     Dosage: UNK
     Route: 048
     Dates: start: 20080701, end: 20080720
  2. PROZAC [Concomitant]
     Dosage: 20 MG, UNK
  3. VICODIN [Concomitant]
     Dosage: UNK

REACTIONS (2)
  - AGGRESSION [None]
  - PHYSICAL ASSAULT [None]
